FAERS Safety Report 13396724 (Version 1)
Quarter: 2017Q2

REPORT INFORMATION
  Report Type: Other
  Country: FR (occurrence: FR)
  Receive Date: 20170403
  Receipt Date: 20170403
  Transmission Date: 20170830
  Serious: Yes (Other)
  Sender: FDA-Public Use
  Company Number: FR-ASTELLAS-2017US012702

PATIENT
  Age: 36 Year
  Sex: Male

DRUGS (12)
  1. ALPRAZOLAM. [Concomitant]
     Active Substance: ALPRAZOLAM
     Indication: PRODUCT USED FOR UNKNOWN INDICATION
     Dosage: UNK UNK, AS NEEDED
     Route: 065
  2. TIENAM [Suspect]
     Active Substance: CILASTATIN SODIUM\IMIPENEM
     Indication: INFECTION PROPHYLAXIS
     Dosage: UNK, UNKNOWN FREQ.
     Route: 042
     Dates: start: 20170211, end: 20170218
  3. FORTUM                             /00559701/ [Suspect]
     Active Substance: CEFTAZIDIME
     Indication: INFECTION PROPHYLAXIS
     Route: 042
     Dates: start: 20170213, end: 20170228
  4. TOPALGIC /00599202/ [Concomitant]
     Active Substance: TRAMADOL
     Indication: PRODUCT USED FOR UNKNOWN INDICATION
     Dosage: 100 IV AS NEEDED
     Route: 042
  5. SMECTA [Concomitant]
     Active Substance: MONTMORILLONITE
     Indication: PRODUCT USED FOR UNKNOWN INDICATION
     Dosage: UNK UNK, THRICE DAILY
     Route: 065
  6. INEXIUM                            /01479302/ [Concomitant]
     Active Substance: ESOMEPRAZOLE MAGNESIUM
     Indication: PRODUCT USED FOR UNKNOWN INDICATION
     Dosage: 20 MG, EVENING
     Route: 065
  7. MAGINJECTABLE [Concomitant]
     Indication: PRODUCT USED FOR UNKNOWN INDICATION
     Dosage: UNKNOWN DOSE PER 24 HOUR
     Route: 042
     Dates: start: 20170130, end: 20170216
  8. TIORFAN [Concomitant]
     Active Substance: RACECADOTRIL
     Indication: PRODUCT USED FOR UNKNOWN INDICATION
     Route: 065
  9. CRESEMBA [Suspect]
     Active Substance: ISAVUCONAZONIUM SULFATE
     Indication: INFECTION PROPHYLAXIS
     Route: 048
     Dates: start: 20170206
  10. DEFIBROTIDE [Suspect]
     Active Substance: DEFIBROTIDE (BOVINE)
     Indication: THROMBOSIS
     Route: 042
     Dates: start: 20170213
  11. THYMOGLOBULIN [Suspect]
     Active Substance: LAPINE T-LYMPHOCYTE IMMUNE GLOBULIN
     Indication: BONE MARROW TRANSPLANT
     Dosage: 230 MG ON D-3 AND D-4
     Route: 042
     Dates: start: 20170213, end: 20170214
  12. METRONIDAZOLE. [Suspect]
     Active Substance: METRONIDAZOLE
     Indication: INFECTION PROPHYLAXIS
     Route: 042
     Dates: start: 20170211

REACTIONS (4)
  - Tachypnoea [Recovered/Resolved]
  - Hyperthermia [Recovered/Resolved]
  - Anaphylactic shock [Recovered/Resolved]
  - Tachycardia [Recovered/Resolved]

NARRATIVE: CASE EVENT DATE: 20170213
